FAERS Safety Report 12856520 (Version 1)
Quarter: 2016Q4

REPORT INFORMATION
  Report Type: Other
  Country: GR (occurrence: GR)
  Receive Date: 20161018
  Receipt Date: 20161018
  Transmission Date: 20170207
  Serious: Yes (Hospitalization)
  Sender: FDA-Public Use
  Company Number: GR-LUPIN PHARMACEUTICALS INC.-2016-04676

PATIENT
  Sex: Female

DRUGS (1)
  1. VALSARTAN. [Suspect]
     Active Substance: VALSARTAN
     Indication: GESTATIONAL HYPERTENSION
     Dosage: 160 MG
     Route: 064

REACTIONS (5)
  - Foetal exposure during pregnancy [Unknown]
  - Oligohydramnios [Unknown]
  - Premature baby [Unknown]
  - Foetal growth restriction [Unknown]
  - Acute kidney injury [Recovering/Resolving]
